FAERS Safety Report 20949846 (Version 3)
Quarter: 2022Q3

REPORT INFORMATION
  Report Type: Report from Study
  Country: US (occurrence: US)
  Receive Date: 20220613
  Receipt Date: 20220906
  Transmission Date: 20221027
  Serious: Yes (Hospitalization, Other)
  Sender: FDA-Public Use
  Company Number: US-TAKEDA-US201815550

PATIENT
  Sex: Female
  Weight: 92.51 kg

DRUGS (23)
  1. HUMAN IMMUNOGLOBULIN G [Suspect]
     Active Substance: HUMAN IMMUNOGLOBULIN G
     Indication: Primary immunodeficiency syndrome
     Dosage: 12 GRAM
     Route: 058
  2. HUMAN IMMUNOGLOBULIN G [Suspect]
     Active Substance: HUMAN IMMUNOGLOBULIN G
     Indication: Immunodeficiency common variable
     Dosage: 15 GRAM, 1/WEEK
     Route: 058
     Dates: start: 20141219
  3. DIPHENHYDRAMINE [Concomitant]
     Active Substance: DIPHENHYDRAMINE
  4. SYMBICORT [Concomitant]
     Active Substance: BUDESONIDE\FORMOTEROL FUMARATE DIHYDRATE
  5. ASPIRIN [Concomitant]
     Active Substance: ASPIRIN
  6. EPINEPHRINE [Concomitant]
     Active Substance: EPINEPHRINE
  7. METOPROLOL TARTRATE [Concomitant]
     Active Substance: METOPROLOL TARTRATE
  8. SPIRIVA [Concomitant]
     Active Substance: TIOTROPIUM BROMIDE MONOHYDRATE
  9. PREVACID [Concomitant]
     Active Substance: LANSOPRAZOLE
  10. PEPCID [Concomitant]
     Active Substance: FAMOTIDINE
  11. ACETAMINOPHEN [Concomitant]
     Active Substance: ACETAMINOPHEN
  12. ZINC [Concomitant]
     Active Substance: ZINC
  13. ALBUTEROL\IPRATROPIUM [Concomitant]
     Active Substance: ALBUTEROL\IPRATROPIUM
  14. OXYGEN [Concomitant]
     Active Substance: OXYGEN
  15. AMLODIPINE BESYLATE [Concomitant]
     Active Substance: AMLODIPINE BESYLATE
  16. MUCINEX [Concomitant]
     Active Substance: GUAIFENESIN
  17. SYNTHROID [Concomitant]
     Active Substance: LEVOTHYROXINE SODIUM
  18. VITAMINS [Concomitant]
     Active Substance: VITAMINS
  19. LORATADINE [Concomitant]
     Active Substance: LORATADINE
  20. CELEXA [Concomitant]
     Active Substance: CITALOPRAM HYDROBROMIDE
  21. HYDROXYZINE HYDROCHLORIDE [Concomitant]
     Active Substance: HYDROXYZINE HYDROCHLORIDE
  22. CALCIUM [Concomitant]
     Active Substance: CALCIUM
  23. PROAIR HFA [Concomitant]
     Active Substance: ALBUTEROL SULFATE

REACTIONS (7)
  - Spinal operation [Unknown]
  - Fatigue [Unknown]
  - Neuralgia [Unknown]
  - Unevaluable event [Unknown]
  - Asthma [Unknown]
  - Sensitive skin [Unknown]
  - COVID-19 [Recovering/Resolving]
